FAERS Safety Report 17454209 (Version 9)
Quarter: 2021Q1

REPORT INFORMATION
  Report Type: Report from Study
  Country: GB (occurrence: GB)
  Receive Date: 20200224
  Receipt Date: 20210318
  Transmission Date: 20210419
  Serious: Yes (Other)
  Sender: FDA-Public Use
  Company Number: GB-CLOVIS ONCOLOGY-CLO-2020-000289

PATIENT

DRUGS (7)
  1. RUCAPARIB [Suspect]
     Active Substance: RUCAPARIB
     Dosage: 500 MG, UNK
     Route: 048
     Dates: start: 20200312, end: 20200402
  2. RUCAPARIB [Suspect]
     Active Substance: RUCAPARIB
     Dosage: UNK
     Dates: end: 20200116
  3. BISOPROLOL [Concomitant]
     Active Substance: BISOPROLOL
     Dosage: 5 MG PO QD
     Route: 048
     Dates: start: 20191024
  4. TAMSULOSIN [Concomitant]
     Active Substance: TAMSULOSIN
     Indication: POLLAKIURIA
     Dosage: 400 MCG PO QD
     Dates: start: 201903
  5. BISOPROLOL [Concomitant]
     Active Substance: BISOPROLOL
     Indication: ARRHYTHMIA
     Dosage: 2.5 MG, PO QD
     Route: 048
     Dates: start: 2004, end: 20191024
  6. RUCAPARIB [Suspect]
     Active Substance: RUCAPARIB
     Dosage: 600 MG, BID
     Route: 048
     Dates: start: 20200127, end: 20200212
  7. RUCAPARIB [Suspect]
     Active Substance: RUCAPARIB
     Indication: BLADDER TRANSITIONAL CELL CARCINOMA
     Dosage: 600 MG, BID
     Route: 048
     Dates: start: 20190829, end: 20191121

REACTIONS (1)
  - Peripheral sensory neuropathy [Recovered/Resolved with Sequelae]

NARRATIVE: CASE EVENT DATE: 20200213
